FAERS Safety Report 5253451-X (Version None)
Quarter: 2007Q1

REPORT INFORMATION
  Report Type: 
  Country: None (occurrence: None)
  Receive Date: 20070301
  Receipt Date: 20070216
  Transmission Date: 20070707
  Serious: Yes (Other)
  Sender: FDA-Public Use
  Company Number: US-SHR-US-2005-027225

PATIENT
  Age: 48 Year
  Sex: Male
  Weight: 79 kg

DRUGS (10)
  1. BETASERON [Suspect]
     Indication: RELAPSING-REMITTING MULTIPLE SCLEROSIS
     Dosage: 8 MIU, EVERY 2D
     Route: 058
     Dates: start: 20050304
  2. PREDNISONE [Suspect]
     Dosage: 1 G, X 4 DAYS
     Route: 042
     Dates: start: 20051107, end: 20051110
  3. NEURONTIN [Concomitant]
     Dosage: 1200 MG/D, UNK
  4. NEURONTIN [Concomitant]
     Dosage: 600 MG, 1X/DAY
  5. ELAVIL [Concomitant]
     Indication: HEADACHE
     Dosage: 50 MG/D, UNK
  6. ELAVIL [Concomitant]
     Dosage: 1-2, DAILY
  7. CIMETIDINE HCL [Concomitant]
  8. TAGAMET [Suspect]
  9. CORTICOSTEROIDS [Concomitant]
  10. CLONAZEPAM [Concomitant]
     Dosage: 20 MG, 3X/DAY

REACTIONS (11)
  - AMNESIA [None]
  - CEREBRAL ATROPHY [None]
  - CONVULSION [None]
  - DRUG INTERACTION [None]
  - HAEMATEMESIS [None]
  - HICCUPS [None]
  - MALAISE [None]
  - MULTIPLE SCLEROSIS [None]
  - NAUSEA [None]
  - OVERDOSE [None]
  - PANCREATIC DISORDER [None]
